FAERS Safety Report 7413341-0 (Version None)
Quarter: 2011Q2

REPORT INFORMATION
  Report Type: 
  Country: None (occurrence: None)
  Receive Date: 20110413
  Receipt Date: 20100402
  Transmission Date: 20111010
  Serious: No
  Sender: FDA-Public Use
  Company Number: US-ASTRAZENECA-2010SE08104

PATIENT
  Age: 49 Year
  Sex: Female

DRUGS (1)
  1. ATENOLOL [Suspect]
     Indication: HYPERTENSION
     Route: 048

REACTIONS (4)
  - DENTAL CARIES [None]
  - TOOTH FRACTURE [None]
  - DRY MOUTH [None]
  - TONGUE INJURY [None]
